FAERS Safety Report 4851075-7 (Version None)
Quarter: 2005Q4

REPORT INFORMATION
  Report Type: 
  Country: None (occurrence: None)
  Receive Date: 20051208
  Receipt Date: 20051201
  Transmission Date: 20060501
  Serious: Yes (Other)
  Sender: FDA-Public Use
  Company Number: 2005162711

PATIENT
  Sex: Female
  Weight: 82.1011 kg

DRUGS (3)
  1. CELEBREX [Suspect]
     Indication: ARTHRALGIA
     Dosage: ORAL
     Route: 048
  2. BEXTRA [Suspect]
     Indication: ARTHRALGIA
     Dosage: 40 MG (1 IN 1 D), ORAL
     Route: 048
     Dates: end: 20051101
  3. PRILOSEC [Concomitant]

REACTIONS (7)
  - BREAST CANCER FEMALE [None]
  - CHRONIC OBSTRUCTIVE PULMONARY DISEASE [None]
  - DRUG INEFFECTIVE [None]
  - NECROSIS [None]
  - POSTOPERATIVE WOUND COMPLICATION [None]
  - RADIATION INJURY [None]
  - SCAR [None]
